FAERS Safety Report 13644929 (Version 1)
Quarter: 2017Q2

REPORT INFORMATION
  Report Type: Spontaneous
  Country: US (occurrence: US)
  Receive Date: 20170612
  Receipt Date: 20170612
  Transmission Date: 20170830
  Serious: No
  Sender: FDA-Public Use
  Company Number: US-ROCHE-1292367

PATIENT
  Sex: Male

DRUGS (1)
  1. XELODA [Suspect]
     Active Substance: CAPECITABINE
     Indication: PANCREATIC CARCINOMA
     Dosage: 3 X 500 MG TAB 2X DAILY FOR 14 DAYS, EVERY 3 WEEKS
     Route: 065

REACTIONS (2)
  - Rash vesicular [Unknown]
  - Pruritus [Unknown]
